FAERS Safety Report 9100453 (Version 3)
Quarter: 2013Q2

REPORT INFORMATION
  Report Type: Spontaneous
  Country: US (occurrence: US)
  Receive Date: 20130215
  Receipt Date: 20130401
  Transmission Date: 20140414
  Serious: Yes (Other)
  Sender: FDA-Public Use
  Company Number: PHEH2013US003791

PATIENT
  Sex: Female

DRUGS (6)
  1. RECLAST [Suspect]
     Dosage: UNK
     Route: 042
  2. FISH OIL [Concomitant]
  3. METAMUCIL [Concomitant]
  4. LUTEIN [Concomitant]
  5. CALCIUM [Concomitant]
  6. VITAMIN D [Concomitant]

REACTIONS (6)
  - Fall [Unknown]
  - Wrist fracture [Unknown]
  - Macular degeneration [Unknown]
  - Joint injury [Unknown]
  - Contusion [Unknown]
  - Musculoskeletal discomfort [Unknown]
